FAERS Safety Report 19380228 (Version 1)
Quarter: 2021Q2

REPORT INFORMATION
  Report Type: Spontaneous
  Country: US (occurrence: US)
  Receive Date: 20210604
  Receipt Date: 20210604
  Transmission Date: 20210717
  Serious: Yes (Death)
  Sender: FDA-Public Use
  Company Number: None

PATIENT
  Age: 64 Year
  Sex: Female

DRUGS (1)
  1. AFINITOR [Suspect]
     Active Substance: EVEROLIMUS
     Indication: NEOPLASM MALIGNANT
     Dosage: 10MG DAILY 21 D ON 7 D   DAILY ORAL
     Route: 048
     Dates: start: 20210115, end: 20210604

REACTIONS (1)
  - Death [None]

NARRATIVE: CASE EVENT DATE: 20210604
